FAERS Safety Report 26024523 (Version 1)
Quarter: 2025Q4

REPORT INFORMATION
  Report Type: Spontaneous
  Country: CN (occurrence: CN)
  Receive Date: 20251111
  Receipt Date: 20251111
  Transmission Date: 20260118
  Serious: Yes (Other)
  Sender: SANOFI AVENTIS
  Company Number: CN-SA-2025SA331724

PATIENT
  Age: 56 Year
  Sex: Male
  Weight: 47.8 kg

DRUGS (1)
  1. ANTI-THYMOCYTE GLOBULIN (RABBIT) NOS [Suspect]
     Active Substance: LAPINE T-LYMPHOCYTE IMMUNE GLOBULIN
     Indication: Preoperative care
     Dosage: 50 MG, QD
     Route: 041
     Dates: start: 20251015, end: 20251018

REACTIONS (3)
  - Asphyxia [Unknown]
  - Chest discomfort [Unknown]
  - Pyrexia [Recovering/Resolving]

NARRATIVE: CASE EVENT DATE: 20251015
